FAERS Safety Report 9828418 (Version 4)
Quarter: 2014Q1

REPORT INFORMATION
  Report Type: Spontaneous
  Country: US (occurrence: US)
  Receive Date: 20140117
  Receipt Date: 20140303
  Transmission Date: 20141002
  Serious: Yes (Hospitalization, Other)
  Sender: FDA-Public Use
  Company Number: US-TEVA-386529USA

PATIENT
  Sex: Female

DRUGS (1)
  1. ORAP [Suspect]
     Dates: end: 200907

REACTIONS (7)
  - Heart injury [Not Recovered/Not Resolved]
  - Heart rate increased [Not Recovered/Not Resolved]
  - Blood pressure abnormal [Unknown]
  - Chest pain [Unknown]
  - Dizziness [Not Recovered/Not Resolved]
  - Cardiac disorder [Unknown]
  - Electrocardiogram QT prolonged [Recovered/Resolved]
